FAERS Safety Report 12914715 (Version 1)
Quarter: 2016Q4

REPORT INFORMATION
  Report Type: Spontaneous
  Country: US (occurrence: US)
  Receive Date: 20161106
  Receipt Date: 20161106
  Transmission Date: 20170207
  Serious: No
  Sender: FDA-Public Use
  Company Number: US-RELYPSA-RLY2016002001

PATIENT
  Sex: Male

DRUGS (9)
  1. BACTRIM DS [Concomitant]
     Active Substance: SULFAMETHOXAZOLE\TRIMETHOPRIM
  2. NEXIUM [Concomitant]
     Active Substance: ESOMEPRAZOLE MAGNESIUM
  3. VELTASSA [Suspect]
     Active Substance: PATIROMER
     Indication: HYPERKALAEMIA
     Dosage: 8.4 G, QD
     Route: 048
  4. LISINOPRIL. [Concomitant]
     Active Substance: LISINOPRIL
  5. TORSEMIDE. [Concomitant]
     Active Substance: TORSEMIDE
  6. FENOFIBRATE. [Concomitant]
     Active Substance: FENOFIBRATE
  7. PROBIOTIC [Concomitant]
     Active Substance: PROBIOTICS NOS
  8. ASPIRIN. [Concomitant]
     Active Substance: ASPIRIN
  9. CENTRUM [Concomitant]
     Active Substance: VITAMINS

REACTIONS (2)
  - Constipation [Unknown]
  - Faeces hard [Unknown]
